FAERS Safety Report 10234251 (Version 1)
Quarter: 2014Q2

REPORT INFORMATION
  Report Type: Spontaneous
  Country: BE (occurrence: BE)
  Receive Date: 20140612
  Receipt Date: 20140612
  Transmission Date: 20141212
  Serious: Yes (Death, Hospitalization, Other)
  Sender: FDA-Public Use
  Company Number: BE-ALKERMES INC.-ALK-2014-003055

PATIENT
  Sex: 0

DRUGS (2)
  1. VERAPAMIL HCL SR [Suspect]
     Indication: PRODUCT USED FOR UNKNOWN INDICATION
     Dosage: UNK
     Route: 048
  2. VENLAFAXINE [Suspect]
     Indication: PRODUCT USED FOR UNKNOWN INDICATION
     Dosage: UNK

REACTIONS (5)
  - Multi-organ failure [Fatal]
  - Cardiogenic shock [Unknown]
  - Overdose [Unknown]
  - Cardiomyopathy [Not Recovered/Not Resolved]
  - Myocardial necrosis [Unknown]
